FAERS Safety Report 8518678-X (Version None)
Quarter: 2012Q3

REPORT INFORMATION
  Report Type: 
  Country: None (occurrence: None)
  Receive Date: 20120718
  Receipt Date: 20110705
  Transmission Date: 20120928
  Serious: No
  Sender: FDA-Public Use
  Company Number: US-BRISTOL-MYERS SQUIBB COMPANY-15805260

PATIENT
  Sex: Male

DRUGS (2)
  1. COUMADIN [Suspect]
     Dates: start: 20110508
  2. COUMADIN [Suspect]
     Dates: start: 20110508

REACTIONS (4)
  - FLATULENCE [None]
  - INTERNATIONAL NORMALISED RATIO FLUCTUATION [None]
  - ABDOMINAL PAIN UPPER [None]
  - NERVOUSNESS [None]
